FAERS Safety Report 12317089 (Version 1)
Quarter: 2016Q2

REPORT INFORMATION
  Report Type: Spontaneous
  Country: BR (occurrence: BR)
  Receive Date: 20160429
  Receipt Date: 20160429
  Transmission Date: 20160815
  Serious: Yes (Hospitalization)
  Sender: FDA-Public Use
  Company Number: BR-ROCHE-1749605

PATIENT
  Age: 92 Year
  Sex: Male

DRUGS (1)
  1. ROCEPHIN [Suspect]
     Active Substance: CEFTRIAXONE SODIUM
     Indication: PRODUCT USED FOR UNKNOWN INDICATION
     Route: 042
     Dates: start: 20160405

REACTIONS (6)
  - Urticaria [Recovered/Resolved]
  - Depressed level of consciousness [Recovered/Resolved]
  - Bradycardia [Recovered/Resolved]
  - Bronchospasm [Recovered/Resolved]
  - Hypotension [Recovered/Resolved]
  - Distributive shock [Recovered/Resolved]

NARRATIVE: CASE EVENT DATE: 20160405
